FAERS Safety Report 4493318-8 (Version None)
Quarter: 2004Q4

REPORT INFORMATION
  Report Type: 
  Country: None (occurrence: None)
  Receive Date: 20041102
  Receipt Date: 20041020
  Transmission Date: 20050328
  Serious: Yes (Hospitalization, Other)
  Sender: FDA-Public Use
  Company Number: 2004-04571

PATIENT
  Age: 55 Year
  Sex: Female
  Weight: 65.8 kg

DRUGS (1)
  1. FERRLECIT [Suspect]
     Indication: ANAEMIA
     Dosage: 500 MG/250 ML X 1 DOSE, INTRAVENOUS
     Route: 042
     Dates: start: 20040904, end: 20040905

REACTIONS (8)
  - ACIDOSIS [None]
  - HYPOTENSION [None]
  - INFUSION RELATED REACTION [None]
  - MEDICATION ERROR [None]
  - MENTAL STATUS CHANGES [None]
  - NAUSEA [None]
  - RESPIRATORY DISTRESS [None]
  - SINUS TACHYCARDIA [None]
